FAERS Safety Report 14236103 (Version 1)
Quarter: 2017Q4

REPORT INFORMATION
  Report Type: Spontaneous
  Country: US (occurrence: US)
  Receive Date: 20171129
  Receipt Date: 20171129
  Transmission Date: 20180321
  Serious: No
  Sender: FDA-Public Use
  Company Number: US-AUROBINDO-AUR-APL-2017-34806

PATIENT
  Sex: Female
  Weight: 90.7 kg

DRUGS (1)
  1. FLUCONAZOLE TABLETS 150 MG [Suspect]
     Active Substance: FLUCONAZOLE
     Indication: ORAL CANDIDIASIS
     Dosage: 150 MG TABLETS 1X1
     Route: 048

REACTIONS (1)
  - Drug ineffective [Not Recovered/Not Resolved]
